FAERS Safety Report 14935173 (Version 1)
Quarter: 2018Q2

REPORT INFORMATION
  Report Type: Spontaneous
  Country: US (occurrence: US)
  Receive Date: 20180524
  Receipt Date: 20180524
  Transmission Date: 20180711
  Serious: Yes (Disabling, Other)
  Sender: FDA-Public Use
  Company Number: US-REGENERON PHARMACEUTICALS, INC.-2018-24031

PATIENT

DRUGS (2)
  1. EYLEA [Suspect]
     Active Substance: AFLIBERCEPT
     Indication: RETINAL VEIN OCCLUSION
     Dosage: OS
  2. EYLEA [Suspect]
     Active Substance: AFLIBERCEPT
     Indication: EYE OEDEMA
     Dosage: LAST PRIOR TO EVENT, OS
     Dates: start: 20180504, end: 20180504

REACTIONS (2)
  - Blindness [Unknown]
  - Vision blurred [Unknown]
